FAERS Safety Report 4370857-1 (Version None)
Quarter: 2004Q2

REPORT INFORMATION
  Report Type: 
  Country: None (occurrence: None)
  Receive Date: 20040526
  Receipt Date: 20040518
  Transmission Date: 20050107
  Serious: Yes (Hospitalization)
  Sender: FDA-Public Use
  Company Number: TIF2004A00012

PATIENT
  Age: 29 Year
  Sex: Male

DRUGS (2)
  1. ZOTON FDT (LANSOPRAZOLE) (CHEWABLE TABLET) [Suspect]
     Indication: DISEASE RECURRENCE
     Dosage: 30 MG (1 IN 1 D) PER ORAL
     Route: 048
     Dates: start: 20040130, end: 20040130
  2. ZOTON FDT (LANSOPRAZOLE) (CHEWABLE TABLET) [Suspect]
     Indication: GASTRIC DISORDER
     Dosage: 30 MG (1 IN 1 D) PER ORAL
     Route: 048
     Dates: start: 20040130, end: 20040130

REACTIONS (2)
  - OBSTRUCTIVE AIRWAYS DISORDER [None]
  - URTICARIA GENERALISED [None]
